FAERS Safety Report 7729961-X (Version None)
Quarter: 2011Q3

REPORT INFORMATION
  Report Type: 
  Country: None (occurrence: None)
  Receive Date: 20110906
  Receipt Date: 20110902
  Transmission Date: 20111222
  Serious: Yes (Other)
  Sender: FDA-Public Use
  Company Number: ZA-PFIZER INC-2011206598

PATIENT
  Age: 17 Year
  Sex: Female
  Weight: 50 kg

DRUGS (3)
  1. CELEBREX [Suspect]
     Dosage: UNK
     Route: 048
  2. ISOTRETINOIN [Concomitant]
     Indication: ACNE
     Dosage: 50 MG, 1X/DAY (DAILY)
     Route: 048
  3. AMOXIL [Concomitant]
     Dosage: UNK
     Route: 048

REACTIONS (1)
  - GLOMERULONEPHRITIS [None]
